FAERS Safety Report 4360683-1 (Version None)
Quarter: 2004Q2

REPORT INFORMATION
  Report Type: 
  Country: None (occurrence: None)
  Receive Date: 20040514
  Receipt Date: 20040504
  Transmission Date: 20050107
  Serious: Yes (Hospitalization)
  Sender: FDA-Public Use
  Company Number: 2004208211GB

PATIENT
  Age: 45 Year
  Sex: Female

DRUGS (9)
  1. DOXORUBICIN HCL [Suspect]
     Indication: BREAST CANCER
     Dosage: 50 MG/M2
  2. ERYTHROMYCIN [Suspect]
     Dosage: 75 MG/M2
  3. DOCETAXEL (DOCETAXEL) [Suspect]
     Indication: BREAST CANCER
     Dosage: 75 MG/M2
  4. GRANISETRON (GRANISETRON) [Concomitant]
  5. DEXAMETHASONE [Concomitant]
  6. OMEPRAZOLE [Concomitant]
  7. MORPHINE [Concomitant]
  8. IBUPROFEN [Concomitant]
  9. METOCLOPRAMIDE [Concomitant]

REACTIONS (9)
  - CLOSTRIDIUM COLITIS [None]
  - DIARRHOEA HAEMORRHAGIC [None]
  - DRUG INTERACTION [None]
  - FEBRILE NEUTROPENIA [None]
  - HAEMATEMESIS [None]
  - HAEMODYNAMIC INSTABILITY [None]
  - JAUNDICE CHOLESTATIC [None]
  - MOUTH ULCERATION [None]
  - RASH MACULO-PAPULAR [None]
